FAERS Safety Report 8494150-0 (Version None)
Quarter: 2012Q2

REPORT INFORMATION
  Report Type: 
  Country: None (occurrence: None)
  Receive Date: 20120628
  Receipt Date: 20120614
  Transmission Date: 20120825
  Serious: Yes (Death, Other)
  Sender: FDA-Public Use
  Company Number: 1321368

PATIENT
  Age: 71 Year
  Sex: Female

DRUGS (11)
  1. ALLOPURINOL [Concomitant]
  2. LAMIVUDINE [Concomitant]
  3. DEXAMETHASONE SODIUM PHOSPHATE [Concomitant]
  4. LEUCOVORIN CALCIUM [Concomitant]
  5. METHOTREXATE [Suspect]
     Indication: CENTRAL NERVOUS SYSTEM LYMPHOMA
     Dosage: 8.6 MG MILLIGRAM(S), INTRAVENOUS (NOT OTHERWISE SPECIFIED)
     Route: 042
     Dates: start: 20111022, end: 20111022
  6. (ESAFOSFINA) [Concomitant]
  7. PROMAZINE HYDROCHLORIDE [Concomitant]
  8. ZOFRAN [Concomitant]
  9. ENOXAPARIN SODIUM [Concomitant]
  10. (GADRAL) [Concomitant]
  11. OMEPRAZOLE [Suspect]
     Indication: PROPHYLAXIS
     Dosage: 20 MG MILLIGRAM(S), ORAL
     Route: 048
     Dates: start: 20110927, end: 20111029

REACTIONS (3)
  - ASPARTATE AMINOTRANSFERASE INCREASED [None]
  - ALANINE AMINOTRANSFERASE INCREASED [None]
  - BLOOD LACTATE DEHYDROGENASE INCREASED [None]
